FAERS Safety Report 4401187-7 (Version None)
Quarter: 2004Q3

REPORT INFORMATION
  Report Type: 
  Country: None (occurrence: None)
  Receive Date: 20040907
  Receipt Date: 20031209
  Transmission Date: 20050211
  Serious: No
  Sender: FDA-Public Use
  Company Number: US-BRISTOL-MYERS SQUIBB COMPANY-12453718

PATIENT
  Age: 74 Year
  Sex: Female
  Weight: 67 kg

DRUGS (6)
  1. COUMADIN [Suspect]
     Indication: HEART RATE IRREGULAR
     Dosage: START 5MG QD;DOWN TO 3MG(? DATE);12/03 STOP X 3DAYS;12/8 RESUME TO 2MG/DAY 12/15 UP TO 2.5MG QD
     Route: 048
  2. CARTIA [Concomitant]
  3. TRIAMTERENE [Concomitant]
  4. EVISTA [Concomitant]
  5. FOLTX [Concomitant]
  6. MAGNESIUM SULFATE [Concomitant]

REACTIONS (4)
  - BLOOD DISORDER [None]
  - COAGULOPATHY [None]
  - EPISTAXIS [None]
  - HEADACHE [None]
